FAERS Safety Report 15723869 (Version 2)
Quarter: 2019Q1

REPORT INFORMATION
  Report Type: Spontaneous
  Country: JP (occurrence: JP)
  Receive Date: 20181214
  Receipt Date: 20190125
  Transmission Date: 20190417
  Serious: Yes (Death, Hospitalization)
  Sender: FDA-Public Use
  Company Number: GXJP2018JP001807

PATIENT
  Age: 73 Year
  Sex: Male

DRUGS (1)
  1. DOCETAXEL. [Suspect]
     Active Substance: DOCETAXEL
     Indication: EXTRAMAMMARY PAGET^S DISEASE
     Dosage: UNK
     Route: 041

REACTIONS (8)
  - Pleural effusion [Fatal]
  - Metastases to lung [Fatal]
  - Septic shock [Recovering/Resolving]
  - Multiple organ dysfunction syndrome [Fatal]
  - Ascites [Fatal]
  - Metastases to liver [Fatal]
  - Product use in unapproved indication [Unknown]
  - Urinary tract infection [Unknown]
